FAERS Safety Report 11264806 (Version 2)
Quarter: 2015Q3

REPORT INFORMATION
  Report Type: Spontaneous
  Country: IT (occurrence: None)
  Receive Date: 20150709
  Receipt Date: 20150720
  Transmission Date: 20151125
  Serious: Yes (Other)
  Sender: FDA-Public Use
  Company Number: NL01PV15_39228

PATIENT
  Age: 58 Year
  Sex: Male

DRUGS (5)
  1. COVERLAM (ALMLIPDINE BESILATE, PERNIDOPRIL ARGININE) [Concomitant]
  2. SEROQUEL (QUETIAPINE FUMARATE) FILM-COATED TABLET [Concomitant]
  3. ZOLPIDEM [Suspect]
     Active Substance: ZOLPIDEM\ZOLPIDEM TARTRATE
     Indication: DEPRESSION
     Dosage: 50 MG, TOTAL
     Route: 048
     Dates: start: 20140810, end: 20140810
  4. EUTIROX (LEVOTHYROXINE SODIUM) TABLET [Concomitant]
  5. RIVOTRIL [Concomitant]
     Active Substance: CLONAZEPAM

REACTIONS (4)
  - Intentional product use issue [None]
  - Sopor [None]
  - Drug abuse [None]
  - Poisoning [None]

NARRATIVE: CASE EVENT DATE: 20140810
